FAERS Safety Report 23461682 (Version 2)
Quarter: 2024Q1

REPORT INFORMATION
  Report Type: Report from Study
  Country: US (occurrence: US)
  Receive Date: 20240131
  Receipt Date: 20240206
  Transmission Date: 20240410
  Serious: No
  Sender: FDA-Public Use
  Company Number: US-BIOVITRUM-2024-US-001513

PATIENT
  Age: 6 Year
  Sex: Female

DRUGS (1)
  1. KINERET [Suspect]
     Active Substance: ANAKINRA
     Indication: Still^s disease
     Dosage: ONCE
     Route: 058

REACTIONS (3)
  - Condition aggravated [Unknown]
  - Injection site reaction [Unknown]
  - Intentional product misuse [Not Recovered/Not Resolved]
